FAERS Safety Report 18218387 (Version 2)
Quarter: 2022Q4

REPORT INFORMATION
  Report Type: Report from Study
  Country: US (occurrence: US)
  Receive Date: 20200901
  Receipt Date: 20221007
  Transmission Date: 20230113
  Serious: Yes (Other)
  Sender: FDA-Public Use
  Company Number: US-TAKEDA-2020TUS036618

PATIENT
  Age: 30 Year
  Sex: Female
  Weight: 60.78 kg

DRUGS (23)
  1. VEDOLIZUMAB [Suspect]
     Active Substance: VEDOLIZUMAB
     Indication: Colitis ulcerative
     Dosage: 300 MILLIGRAM, MONTHLY
     Route: 042
     Dates: start: 20150701, end: 20210211
  2. ACETAMINOPHEN [Concomitant]
     Active Substance: ACETAMINOPHEN
     Indication: Migraine
     Dosage: 1 GRAM, 1/WEEK
     Route: 048
     Dates: start: 20200524, end: 20201008
  3. ASPIRIN [Concomitant]
     Active Substance: ASPIRIN
     Indication: Pre-eclampsia
     Dosage: 81 MILLIGRAM, QD
     Route: 048
     Dates: start: 20200816, end: 20210211
  4. DIETARY SUPPLEMENT [Concomitant]
     Active Substance: DIETARY SUPPLEMENT
     Indication: Supplementation therapy
     Dosage: 830 MILLIGRAM, QD
     Route: 048
     Dates: start: 20200501
  5. UCERIS [Concomitant]
     Active Substance: BUDESONIDE
     Indication: Colitis ulcerative
     Dosage: UNK UNK, QD
     Route: 067
     Dates: end: 20180815
  6. UCERIS [Concomitant]
     Active Substance: BUDESONIDE
     Dosage: UNK UNK, QD
     Route: 048
     Dates: start: 20180801, end: 20180831
  7. VITAMIN B6 [Concomitant]
     Active Substance: PYRIDOXINE HYDROCHLORIDE
     Indication: Nausea
     Dosage: 100 MILLIGRAM
     Route: 048
     Dates: start: 20200715, end: 20200731
  8. WELLBUTRIN [Concomitant]
     Active Substance: BUPROPION HYDROCHLORIDE
     Indication: Anxiety
     Dosage: 300 MILLIGRAM, QD
     Route: 048
     Dates: start: 20200524
  9. ZOFRAN                             /00955301/ [Concomitant]
     Indication: Nausea
     Dosage: 4 MILLIGRAM
     Route: 048
     Dates: start: 20200719, end: 20200722
  10. PREDNISONE [Concomitant]
     Active Substance: PREDNISONE
     Indication: Colitis ulcerative
     Dosage: UNK UNK, QD
     Route: 048
     Dates: end: 20180815
  11. VITAMIN D3 [Concomitant]
     Active Substance: CHOLECALCIFEROL
     Dosage: UNK
     Route: 048
     Dates: start: 20200524, end: 20201116
  12. ROBITUSSIN DM [Concomitant]
     Active Substance: DEXTROMETHORPHAN HYDROBROMIDE\GUAIFENESIN
     Indication: COVID-19
     Dosage: 20 MILLILITER, QD
     Route: 048
     Dates: start: 20201120, end: 20201123
  13. SUDAFED [Concomitant]
     Active Substance: PSEUDOEPHEDRINE HYDROCHLORIDE
     Indication: Sinusitis
     Dosage: UNK
     Route: 048
     Dates: start: 20200913, end: 20200914
  14. TETANUS TOXOID, REDUCED DIPHTHERIA TOXOID AND ACELLULAR PERTUSSIS VACC [Concomitant]
     Active Substance: TETANUS TOXOID, REDUCED DIPHTHERIA TOXOID AND ACELLULAR PERTUSSIS VACCINE ADSORBED, TDAP
     Dosage: UNK UNK, QD
     Dates: start: 20180701, end: 20180731
  15. TYLENOL [Concomitant]
     Active Substance: ACETAMINOPHEN
     Indication: COVID-19
     Dosage: 1 GRAM, BID
     Route: 048
     Dates: start: 20201120, end: 20201123
  16. ZITHROMAX [Concomitant]
     Active Substance: AZITHROMYCIN DIHYDRATE
     Indication: Sinusitis
     Dosage: UNK
     Route: 048
     Dates: start: 20200914, end: 20200917
  17. IRON [Concomitant]
     Active Substance: IRON
     Indication: Anaemia
     Dosage: UNK UNK, QD
     Route: 042
     Dates: start: 20210115, end: 20210115
  18. IRON [Concomitant]
     Active Substance: IRON
     Dosage: 25 MILLIGRAM, QD
     Route: 048
     Dates: start: 20201206, end: 20201220
  19. IRON [Concomitant]
     Active Substance: IRON
     Dosage: 25 MILLIGRAM, 2/WEEK
     Route: 048
     Dates: start: 20201221, end: 20210115
  20. CAFFEINE [Concomitant]
     Active Substance: CAFFEINE
     Dosage: UNK UNK, 2/WEEK
     Route: 048
     Dates: start: 20200524, end: 20210211
  21. ADACEL TDAP [Concomitant]
     Active Substance: TETANUS TOXOID, REDUCED DIPHTHERIA TOXOID AND ACELLULAR PERTUSSIS VACCINE ADSORBED, TDAP
     Dosage: UNK UNK, QD
     Route: 030
     Dates: start: 20201222, end: 20201222
  22. BONJESTA [Concomitant]
     Active Substance: DOXYLAMINE SUCCINATE\PYRIDOXINE HYDROCHLORIDE
     Indication: Nausea
     Dosage: 20 MILLIGRAM
  23. INFLUENZA VIRUS VACCINE [Concomitant]
     Active Substance: INFLUENZA VIRUS VACCINE
     Dosage: UNK UNK, QD
     Route: 030
     Dates: start: 20200826, end: 20200826

REACTIONS (2)
  - Constipation [Unknown]
  - Pregnancy [Recovered/Resolved]

NARRATIVE: CASE EVENT DATE: 20170701
